FAERS Safety Report 7115455-1 (Version None)
Quarter: 2010Q4

REPORT INFORMATION
  Report Type: 
  Country: None (occurrence: None)
  Receive Date: 20101122
  Receipt Date: 20100607
  Transmission Date: 20110411
  Serious: No
  Sender: FDA-Public Use
  Company Number: US-BAYER-201019552NA

PATIENT
  Age: 46 Year
  Sex: Female

DRUGS (2)
  1. CLIMARA PRO [Suspect]
     Indication: HYSTERECTOMY
     Dosage: 0.045MG/0.015MG/DAY
     Route: 062
     Dates: start: 20040101
  2. CLIMARA PRO [Suspect]
     Dosage: 0.045MG/0.015MG/DAY
     Route: 062
     Dates: start: 20100301, end: 20100401

REACTIONS (2)
  - ABDOMINAL PAIN [None]
  - BREAST PAIN [None]
